FAERS Safety Report 25440000 (Version 2)
Quarter: 2025Q3

REPORT INFORMATION
  Report Type: Spontaneous
  Country: US (occurrence: US)
  Receive Date: 20250616
  Receipt Date: 20250707
  Transmission Date: 20251020
  Serious: No
  Sender: PFIZER
  Company Number: US-PFIZER INC-PV202400159751

PATIENT
  Age: 65 Year
  Sex: Female

DRUGS (2)
  1. TUKYSA [Suspect]
     Active Substance: TUCATINIB
     Dosage: ONE 150 MG TABLET EVERY 12 HOURS/1 TABLET, TWICE A DAY
     Route: 048
  2. TUKYSA [Suspect]
     Active Substance: TUCATINIB
     Dosage: TWO 50 MG TABLETS EVERY 12 HOURS/2 TABLETS, TWICE A DAY
     Route: 048

REACTIONS (2)
  - Confusional state [Unknown]
  - Off label use [Unknown]
